FAERS Safety Report 5765079-3 (Version None)
Quarter: 2008Q2

REPORT INFORMATION
  Report Type: 
  Country: None (occurrence: None)
  Receive Date: 20080611
  Receipt Date: 20080530
  Transmission Date: 20081010
  Serious: Yes (Other)
  Sender: FDA-Public Use
  Company Number: US-ELI_LILLY_AND_COMPANY-US200806000426

PATIENT
  Sex: Female

DRUGS (2)
  1. HUMALOG [Suspect]
  2. HUMAN INSULIN (RDNA ORIGIN) [Suspect]

REACTIONS (5)
  - BACK INJURY [None]
  - BLOOD PRESSURE INCREASED [None]
  - BREAST CANCER [None]
  - DRUG INEFFECTIVE [None]
  - SURGERY [None]
